FAERS Safety Report 9560680 (Version 2)
Quarter: 2013Q4

REPORT INFORMATION
  Report Type: Spontaneous
  Country: BR (occurrence: BR)
  Receive Date: 20130927
  Receipt Date: 20131107
  Transmission Date: 20140711
  Serious: Yes (Other)
  Sender: FDA-Public Use
  Company Number: BR-NOVOPROD-388265

PATIENT
  Sex: Female
  Weight: 63 kg

DRUGS (4)
  1. NOVOLIN N PENFILL [Suspect]
     Indication: TYPE 2 DIABETES MELLITUS
     Dosage: 35 IU
     Route: 058
     Dates: start: 2005
  2. NOVOLIN N PENFILL [Suspect]
     Dosage: 50 IU, QD (25+25 IU MORNING AND AT NIGHT)
     Route: 058
  3. AAS [Concomitant]
     Indication: ANTICOAGULANT THERAPY
     Dosage: 100MG, 1 TAB, QD
     Route: 048
  4. LOSARTAN POTASSIUM [Concomitant]
     Indication: HYPERTENSION
     Dosage: 50MG, 1 TAB, QD
     Route: 048

REACTIONS (2)
  - Venous occlusion [Not Recovered/Not Resolved]
  - Eye haemorrhage [Not Recovered/Not Resolved]
